FAERS Safety Report 23371856 (Version 1)
Quarter: 2024Q1

REPORT INFORMATION
  Report Type: Spontaneous
  Country: US (occurrence: None)
  Receive Date: 20240105
  Receipt Date: 20240105
  Transmission Date: 20240409
  Serious: Yes (Disabling, Other)
  Sender: FDA-Public Use
  Company Number: None

PATIENT
  Age: 73 Year
  Sex: Female
  Weight: 45.9 kg

DRUGS (3)
  1. IMIQUIMOD [Suspect]
     Active Substance: IMIQUIMOD
     Indication: Actinic keratosis
     Dosage: OTHER QUANTITY : 1 DROP(S);?FREQUENCY : AT BEDTIME;?
     Route: 061
     Dates: start: 20231030, end: 20231104
  2. Hip replacement device [Concomitant]
  3. ADVIL [Concomitant]
     Active Substance: IBUPROFEN

REACTIONS (13)
  - Malaise [None]
  - Pyrexia [None]
  - Vomiting [None]
  - Myalgia [None]
  - Muscular weakness [None]
  - Rash [None]
  - Rash [None]
  - Chemical burn [None]
  - Back pain [None]
  - Pain in extremity [None]
  - Hemiparesis [None]
  - Weight bearing difficulty [None]
  - Gait inability [None]

NARRATIVE: CASE EVENT DATE: 20231104
